FAERS Safety Report 4801543-9 (Version None)
Quarter: 2005Q4

REPORT INFORMATION
  Report Type: 
  Country: None (occurrence: None)
  Receive Date: 20051012
  Receipt Date: 20051003
  Transmission Date: 20060501
  Serious: Yes (Hospitalization)
  Sender: FDA-Public Use
  Company Number: 12539

PATIENT
  Age: 56 Year
  Sex: Male

DRUGS (9)
  1. AMIODARONE HCL [Suspect]
     Dosage: 600 MG PO
     Route: 048
  2. SIMVASTATIN [Suspect]
     Dosage: 40 MG PO
     Route: 048
  3. CLARITHROMYCIN [Suspect]
     Indication: LOWER RESPIRATORY TRACT INFECTION
     Dosage: 1 G PO
     Route: 048
  4. ADENOSINE [Suspect]
  5. AMLODIPINE BESYLATE [Concomitant]
  6. ASPIRIN [Concomitant]
  7. CEFTRIAXONE [Concomitant]
  8. LANSOPRAZOLE [Concomitant]
  9. FERROUS SULFATE TAB [Concomitant]

REACTIONS (7)
  - ASTHENIA [None]
  - DRUG INTERACTION [None]
  - LIVER FUNCTION TEST ABNORMAL [None]
  - MOVEMENT DISORDER [None]
  - MYALGIA [None]
  - MYOPATHY [None]
  - MYOSITIS [None]
